FAERS Safety Report 6765387-3 (Version None)
Quarter: 2010Q2

REPORT INFORMATION
  Report Type: 
  Country: None (occurrence: None)
  Receive Date: 20100609
  Receipt Date: 20100526
  Transmission Date: 20101027
  Serious: Yes (Hospitalization)
  Sender: FDA-Public Use
  Company Number: 2010PL000021

PATIENT
  Age: 53 Year
  Sex: Female
  Weight: 68.0396 kg

DRUGS (7)
  1. LOTRONEX [Suspect]
     Indication: DIARRHOEA
     Dosage: 1 MG;PRN;PO
     Route: 048
     Dates: start: 20090101
  2. CYMBALTA [Concomitant]
  3. ZOLOFT [Concomitant]
  4. AMITRIPTYLINE [Concomitant]
  5. DIAZEPAM [Concomitant]
  6. POTASSIUM [Concomitant]
  7. METOPROLOL [Concomitant]

REACTIONS (16)
  - APHASIA [None]
  - ASTHENIA [None]
  - BRADYPHRENIA [None]
  - CYANOSIS [None]
  - DEHYDRATION [None]
  - DIARRHOEA [None]
  - DYSPHEMIA [None]
  - FALL [None]
  - HEART RATE INCREASED [None]
  - IMPAIRED WORK ABILITY [None]
  - INTESTINAL OBSTRUCTION [None]
  - LOSS OF CONSCIOUSNESS [None]
  - MALAISE [None]
  - OXYGEN SATURATION DECREASED [None]
  - PULMONARY EMBOLISM [None]
  - SPEECH DISORDER [None]
